FAERS Safety Report 20805386 (Version 2)
Quarter: 2022Q2

REPORT INFORMATION
  Report Type: Spontaneous
  Country: US (occurrence: None)
  Receive Date: 20220510
  Receipt Date: 20220523
  Transmission Date: 20220720
  Serious: No
  Sender: FDA-Public Use
  Company Number: US-Eisai Medical Research-EC-2022-113665

PATIENT
  Sex: Male

DRUGS (3)
  1. FYCOMPA [Suspect]
     Active Substance: PERAMPANEL
     Indication: Epilepsy
     Dosage: DOSE AND FREQUENCY UNKNOWN
     Route: 048
  2. FYCOMPA [Suspect]
     Active Substance: PERAMPANEL
     Dosage: UP-TITRATION: DOSE AND FREQUENCY UNKNOWN
     Route: 048
  3. FYCOMPA [Suspect]
     Active Substance: PERAMPANEL
     Dosage: UNSPECIFIED HIGH DOSE, FREQUENCY UNKNOWN
     Route: 048

REACTIONS (1)
  - Dizziness [Recovering/Resolving]
